FAERS Safety Report 19469053 (Version 2)
Quarter: 2022Q2

REPORT INFORMATION
  Report Type: Other
  Country: US (occurrence: None)
  Receive Date: 20210628
  Receipt Date: 20220512
  Transmission Date: 20220721
  Serious: Yes (Hospitalization, Disabling, Other)
  Sender: FDA-Public Use
  Company Number: US-ROCHE-2855062

PATIENT
  Age: 55 Year
  Sex: Male

DRUGS (18)
  1. OCREVUS [Suspect]
     Active Substance: OCRELIZUMAB
     Indication: Relapsing multiple sclerosis
     Dosage: THEN 600 MG EVERY 6 MONTHS
     Route: 042
     Dates: start: 20190213, end: 20211006
  2. FERROUS SULFATE [Concomitant]
     Active Substance: FERROUS SULFATE
     Route: 048
  3. GUAIFENESIN [Concomitant]
     Active Substance: GUAIFENESIN
     Route: 048
  4. GABAPENTIN [Concomitant]
     Active Substance: GABAPENTIN
     Route: 048
  5. LOPERAMIDE [Concomitant]
     Active Substance: LOPERAMIDE
     Route: 048
  6. METAXALONE [Concomitant]
     Active Substance: METAXALONE
     Route: 048
  7. METOPROLOL [Concomitant]
     Active Substance: METOPROLOL
     Route: 048
  8. RANITIDINE HYDROCHLORIDE [Concomitant]
     Active Substance: RANITIDINE HYDROCHLORIDE
  9. PANTOPRAZOLE [Concomitant]
     Active Substance: PANTOPRAZOLE
     Route: 048
  10. POTASSIUM CHLORIDE [Concomitant]
     Active Substance: POTASSIUM CHLORIDE
     Route: 048
  11. SEROQUEL [Concomitant]
     Active Substance: QUETIAPINE FUMARATE
     Route: 048
  12. TYLENOL [Concomitant]
     Active Substance: ACETAMINOPHEN
     Dosage: 2 TABLETS
     Route: 048
  13. APLISOL [Concomitant]
     Active Substance: TUBERCULIN PURIFIED PROTEIN DERIVATIVE
     Route: 023
  14. BACLOFEN [Concomitant]
     Active Substance: BACLOFEN
     Route: 048
  15. DULOXETINE [Concomitant]
     Active Substance: DULOXETINE
     Route: 048
  16. ELIQUIS [Concomitant]
     Active Substance: APIXABAN
  17. VITAMIN D3 [Concomitant]
     Active Substance: CHOLECALCIFEROL
     Dosage: 50 MCG
     Route: 048
  18. NORCO [Concomitant]
     Active Substance: ACETAMINOPHEN\HYDROCODONE BITARTRATE
     Route: 048

REACTIONS (12)
  - COVID-19 [Recovered/Resolved]
  - Gait disturbance [Unknown]
  - Coordination abnormal [Unknown]
  - Embolism [Unknown]
  - Polyneuropathy [Unknown]
  - Major depression [Unknown]
  - Essential hypertension [Unknown]
  - Muscle spasms [Unknown]
  - Gastrooesophageal reflux disease [Unknown]
  - Deep vein thrombosis [Unknown]
  - Deep vein thrombosis [Unknown]
  - Psychotic disorder [Unknown]

NARRATIVE: CASE EVENT DATE: 20200210
